FAERS Safety Report 6525510-2 (Version None)
Quarter: 2010Q1

REPORT INFORMATION
  Report Type: 
  Country: None (occurrence: None)
  Receive Date: 20100104
  Receipt Date: 20091221
  Transmission Date: 20100710
  Serious: Yes (Other)
  Sender: FDA-Public Use
  Company Number: DE-PFIZER INC-2009312345

PATIENT
  Age: 24 Year
  Sex: Male
  Weight: 60 kg

DRUGS (1)
  1. CHAMPIX [Suspect]
     Indication: TOBACCO USER
     Dosage: 0.5 MG, 1X/DAY
     Route: 048
     Dates: start: 20090820, end: 20090904

REACTIONS (4)
  - DEPRESSION [None]
  - INSOMNIA [None]
  - LISTLESS [None]
  - WITHDRAWAL SYNDROME [None]
